FAERS Safety Report 10648370 (Version 1)
Quarter: 2014Q4

REPORT INFORMATION
  Report Type: Spontaneous
  Country: US (occurrence: None)
  Receive Date: 20141211
  Receipt Date: 20141211
  Transmission Date: 20150529
  Serious: No
  Sender: FDA-Public Use
  Company Number: None

PATIENT
  Age: 73 Year
  Sex: Female
  Weight: 47.17 kg

DRUGS (1)
  1. AZITHROMYCIN [Suspect]
     Active Substance: AZITHROMYCIN ANHYDROUS
     Indication: MYCOBACTERIAL INFECTION
     Dosage: 500 MG TABLETS 1 TAB MO, WE, + FRI TAKEN BY MOUTH
     Route: 048
     Dates: start: 20141124, end: 20141210

REACTIONS (5)
  - Nausea [None]
  - Blood sodium decreased [None]
  - Fungal infection [None]
  - Platelet count decreased [None]
  - Headache [None]

NARRATIVE: CASE EVENT DATE: 20141208
